FAERS Safety Report 25505431 (Version 2)
Quarter: 2025Q3

REPORT INFORMATION
  Report Type: Report from Study
  Country: GB (occurrence: GB)
  Receive Date: 20250702
  Receipt Date: 20250709
  Transmission Date: 20251020
  Serious: Yes (Hospitalization)
  Sender: ABBVIE
  Company Number: GB-ABBVIE-6348505

PATIENT
  Age: 17 Year
  Sex: Female
  Weight: 43.2 kg

DRUGS (15)
  1. HUMIRA [Suspect]
     Active Substance: ADALIMUMAB
     Indication: Crohn^s disease
     Route: 058
     Dates: start: 20160210, end: 20180810
  2. HUMIRA [Suspect]
     Active Substance: ADALIMUMAB
     Route: 058
     Dates: start: 20180912
  3. AZATHIOPRINE [Suspect]
     Active Substance: AZATHIOPRINE
     Indication: Crohn^s disease
     Route: 048
     Dates: start: 20161116, end: 20200909
  4. Aciferol d3 [Concomitant]
     Indication: Vitamin supplementation
     Route: 048
     Dates: start: 201711
  5. CALCIUM CARBONATE\CHOLECALCIFEROL [Concomitant]
     Active Substance: CALCIUM CARBONATE\CHOLECALCIFEROL
     Indication: Supplementation therapy
     Route: 048
     Dates: start: 20140817
  6. BETNESOL [Concomitant]
     Indication: Orofacial granulomatosis
     Dosage: DOSE 500MCG?ROA MOUTHWASH
     Dates: start: 20171128
  7. DERMOL [Concomitant]
     Active Substance: BENZALKONIUM CHLORIDE\CHLORHEXIDINE HYDROCHLORIDE\ISOPROPYL MYRISTATE\PARAFFIN
     Indication: Eczema
     Dates: start: 20210409
  8. CHLOROCRESOL [Concomitant]
     Active Substance: CHLOROCRESOL
     Indication: Eczema
     Dates: start: 20170403
  9. FERROUS SULFATE [Concomitant]
     Active Substance: FERROUS SULFATE
     Indication: Iron deficiency
     Route: 048
     Dates: start: 20210421
  10. CARBOHYDRATES\FATTY ACIDS\MINERALS\PROTEIN\VITAMINS [Concomitant]
     Active Substance: CARBOHYDRATES\FATTY ACIDS\MINERALS\PROTEIN\VITAMINS
     Indication: Supplementation therapy
     Route: 048
     Dates: start: 201706
  11. HYDROUS [Concomitant]
     Indication: Crohn^s disease
     Dates: start: 201712
  12. PENTASA [Concomitant]
     Active Substance: MESALAMINE
     Indication: Crohn^s disease
     Route: 048
     Dates: start: 20110427
  13. SYTRON [Concomitant]
     Indication: Iron deficiency
     Route: 048
     Dates: start: 20110909
  14. USTEKINUMAB [Concomitant]
     Active Substance: USTEKINUMAB
     Indication: Crohn^s disease
     Route: 042
     Dates: start: 20180912
  15. Zeroaqs [Concomitant]
     Indication: Crohn^s disease
     Dates: start: 201709

REACTIONS (2)
  - Abdominal pain [Recovered/Resolved]
  - Crohn^s disease [Recovered/Resolved]

NARRATIVE: CASE EVENT DATE: 20230716
